FAERS Safety Report 9763040 (Version 1)
Quarter: 2013Q4

REPORT INFORMATION
  Report Type: Spontaneous
  Country: US (occurrence: US)
  Receive Date: 20131216
  Receipt Date: 20131216
  Transmission Date: 20140711
  Serious: No
  Sender: FDA-Public Use
  Company Number: US-BIOGENIDEC-2013BI105216

PATIENT
  Age: 47 Year
  Sex: Female

DRUGS (9)
  1. TECFIDERA [Suspect]
     Indication: MULTIPLE SCLEROSIS
     Route: 048
     Dates: start: 201309
  2. TECFIDERA [Suspect]
     Indication: MULTIPLE SCLEROSIS
     Route: 048
     Dates: start: 2013
  3. IBUPROFEN [Concomitant]
  4. IBUPROFEN [Concomitant]
  5. VITAMIN B12 [Concomitant]
  6. VITAMIN D2 [Concomitant]
  7. CYCLOBENZAPRINE HCL [Concomitant]
  8. TYLENOL 8 HOUR [Concomitant]
  9. CRANBERRY JUICE EXTRACT [Concomitant]

REACTIONS (2)
  - Blister [Unknown]
  - Flushing [Unknown]
